FAERS Safety Report 6923582-4 (Version None)
Quarter: 2010Q3

REPORT INFORMATION
  Report Type: 
  Country: None (occurrence: None)
  Receive Date: 20100813
  Receipt Date: 20100723
  Transmission Date: 20110219
  Serious: Yes (Life-Threatening, Hospitalization)
  Sender: FDA-Public Use
  Company Number: A0875317A

PATIENT
  Age: 71 Year
  Sex: Male

DRUGS (10)
  1. CARVEDILOL [Suspect]
     Route: 065
  2. COUMADIN [Suspect]
     Dosage: 5MG UNKNOWN
     Route: 065
  3. CIPROFLOXACIN [Suspect]
     Route: 065
  4. ERLOTINIB HYDROCHLORIDE [Suspect]
     Dosage: 1100MG PER DAY
     Route: 048
     Dates: start: 20100630
  5. GEMCITABINE HCL [Suspect]
     Dosage: 3600MG CYCLIC
     Route: 042
     Dates: start: 20100630
  6. STUDY MEDICATION [Suspect]
     Dosage: 780MG CYCLIC
     Route: 042
     Dates: start: 20100630
  7. CARDURA [Suspect]
     Route: 065
  8. MAGNESIUM OXIDE [Suspect]
     Route: 065
  9. PRINIVIL [Suspect]
     Route: 065
  10. PROSCAR [Suspect]
     Route: 065

REACTIONS (11)
  - CELLULITIS [None]
  - CEREBRAL ISCHAEMIA [None]
  - CHILLS [None]
  - CYSTITIS [None]
  - DECUBITUS ULCER [None]
  - DEEP VEIN THROMBOSIS [None]
  - HAEMOGLOBIN DECREASED [None]
  - MUSCULAR WEAKNESS [None]
  - OEDEMA PERIPHERAL [None]
  - PYREXIA [None]
  - RASH [None]
